FAERS Safety Report 15334454 (Version 3)
Quarter: 2018Q4

REPORT INFORMATION
  Report Type: Spontaneous
  Country: US (occurrence: US)
  Receive Date: 20180830
  Receipt Date: 20181016
  Transmission Date: 20190204
  Serious: No
  Sender: FDA-Public Use
  Company Number: US-PFIZER INC-2018345671

PATIENT
  Age: 76 Year
  Sex: Male

DRUGS (2)
  1. ADVIL MIGRAINE [Suspect]
     Active Substance: IBUPROFEN
     Dosage: UNK (40CT)
  2. ADVIL MIGRAINE [Suspect]
     Active Substance: IBUPROFEN
     Dosage: UNK

REACTIONS (6)
  - Product use complaint [Unknown]
  - Product coating issue [Unknown]
  - Poor quality product administered [Unknown]
  - Oropharyngeal pain [Unknown]
  - Throat irritation [Unknown]
  - Intentional product misuse [Unknown]
